FAERS Safety Report 7809194-9 (Version None)
Quarter: 2011Q4

REPORT INFORMATION
  Report Type: 
  Country: None (occurrence: None)
  Receive Date: 20111012
  Receipt Date: 20110315
  Transmission Date: 20120403
  Serious: Yes (Congenital Anomaly)
  Sender: FDA-Public Use
  Company Number: GB-UCBSA-027943

PATIENT
  Age: 1 Month
  Sex: Female
  Weight: 3.46 kg

DRUGS (5)
  1. FOLIC ACID [Suspect]
     Indication: PREGNANCY
     Route: 064
     Dates: start: 20100401
  2. LYRICA [Suspect]
     Indication: PAIN
     Route: 064
     Dates: start: 20100401
  3. ACETAMINOPHEN AND CODEINE PHOSPHATE [Suspect]
     Indication: PAIN
     Dosage: 30/500 2 TABLETS
     Route: 064
     Dates: start: 20100401
  4. HYDROXOCOBALAMIN [Suspect]
     Indication: VITAMIN B12 DEFICIENCY
     Route: 064
     Dates: start: 20100401
  5. OMEPRAZOLE [Suspect]
     Indication: PROPHYLAXIS AGAINST GASTROINTESTINAL ULCER
     Route: 064
     Dates: start: 20100401

REACTIONS (2)
  - HIP DYSPLASIA [None]
  - MATERNAL EXPOSURE DURING PREGNANCY [None]
